FAERS Safety Report 16808559 (Version 2)
Quarter: 2019Q3

REPORT INFORMATION
  Report Type: Spontaneous
  Country: CA (occurrence: CA)
  Receive Date: 20190916
  Receipt Date: 20190920
  Transmission Date: 20191005
  Serious: Yes (Other)
  Sender: FDA-Public Use
  Company Number: CA-ASTRAZENECA-2019SF29770

PATIENT
  Age: 70 Year
  Sex: Male

DRUGS (3)
  1. SEROQUEL [Suspect]
     Active Substance: QUETIAPINE FUMARATE
     Indication: DEPRESSION
     Dosage: AS NEEDED
     Route: 048
     Dates: start: 2014
  2. SEROQUEL [Suspect]
     Active Substance: QUETIAPINE FUMARATE
     Indication: DEPRESSION
     Dosage: GENERIC
     Route: 065
  3. LEVODOPA [Concomitant]
     Active Substance: LEVODOPA

REACTIONS (11)
  - Musculoskeletal stiffness [Unknown]
  - Dyspnoea [Unknown]
  - Cold sweat [Unknown]
  - Urinary retention [Unknown]
  - Heart rate irregular [Unknown]
  - Dysstasia [Unknown]
  - Catatonia [Unknown]
  - Anxiety [Unknown]
  - Speech disorder [Unknown]
  - Hyperhidrosis [Unknown]
  - Syncope [Unknown]

NARRATIVE: CASE EVENT DATE: 2019
